FAERS Safety Report 20494688 (Version 12)
Quarter: 2023Q2

REPORT INFORMATION
  Report Type: Report from Study
  Country: US (occurrence: US)
  Receive Date: 20220221
  Receipt Date: 20230620
  Transmission Date: 20230722
  Serious: Yes (Other)
  Sender: FDA-Public Use
  Company Number: US-JAZZ-2021-US-026724

PATIENT
  Sex: Female
  Weight: 102.7 kg

DRUGS (15)
  1. XYREM [Suspect]
     Active Substance: SODIUM OXYBATE
     Indication: Narcolepsy
     Dosage: 4 GRAM, BID
     Route: 048
  2. XYREM [Suspect]
     Active Substance: SODIUM OXYBATE
     Indication: Cataplexy
  3. XYREM [Suspect]
     Active Substance: SODIUM OXYBATE
     Indication: Somnolence
  4. SUNOSI [Concomitant]
     Active Substance: SOLRIAMFETOL
     Indication: Product used for unknown indication
     Dosage: UNK
     Dates: start: 20200210
  5. GABAPENTIN [Concomitant]
     Active Substance: GABAPENTIN
     Indication: Product used for unknown indication
     Dosage: UNK
     Dates: start: 20210828
  6. INVEGA [Concomitant]
     Active Substance: PALIPERIDONE
     Indication: Product used for unknown indication
     Dosage: 819 MILLIGRAM EVERY 3 MONTHS
     Route: 030
     Dates: start: 20211217
  7. INVEGA [Concomitant]
     Active Substance: PALIPERIDONE
     Dosage: UNK
     Dates: start: 20220501
  8. ZYRTEC [Concomitant]
     Active Substance: CETIRIZINE HYDROCHLORIDE
     Indication: Product used for unknown indication
     Dosage: UNK
     Dates: start: 20220404
  9. HYDROCODONE BITARTRATE AND ACETAMINOPHEN [Concomitant]
     Active Substance: ACETAMINOPHEN\HYDROCODONE BITARTRATE
     Indication: Product used for unknown indication
     Dosage: 5-325 MG
     Dates: start: 20220707
  10. LEVOTHYROXINE [Concomitant]
     Active Substance: LEVOTHYROXINE
     Indication: Product used for unknown indication
     Dosage: 88 MICROGRAM, QD
     Route: 048
  11. PROVIGIL [Concomitant]
     Active Substance: MODAFINIL
     Indication: Product used for unknown indication
     Dosage: 200 MILLIGRAM, QD
     Route: 048
  12. INNOPRAN [Concomitant]
     Indication: Product used for unknown indication
     Dosage: 160 MILLIGRAM, QD
     Route: 048
  13. LITHIUM [Concomitant]
     Active Substance: LITHIUM
     Indication: Product used for unknown indication
  14. PROPRANOLOL [Concomitant]
     Active Substance: PROPRANOLOL HYDROCHLORIDE
     Indication: Product used for unknown indication
  15. ABILIFY [Concomitant]
     Active Substance: ARIPIPRAZOLE
     Indication: Product used for unknown indication

REACTIONS (10)
  - Schizoaffective disorder [Recovered/Resolved]
  - Surgery [Unknown]
  - Seasonal allergy [Unknown]
  - Hypotonia [Unknown]
  - Nasal congestion [Unknown]
  - Hypersomnia [Unknown]
  - Bruxism [Unknown]
  - Nocturia [Unknown]
  - Product administration interrupted [Unknown]
  - Intentional product use issue [Unknown]
